FAERS Safety Report 15716045 (Version 2)
Quarter: 2019Q1

REPORT INFORMATION
  Report Type: Spontaneous
  Country: FR (occurrence: FR)
  Receive Date: 20181213
  Receipt Date: 20190307
  Transmission Date: 20190417
  Serious: Yes (Life-Threatening, Hospitalization)
  Sender: FDA-Public Use
  Company Number: FR-B.I. PHARMACEUTICALS,INC./RIDGEFIELD-2018-12-003959

PATIENT
  Age: 75 Year
  Sex: Male

DRUGS (2)
  1. OFEV [Suspect]
     Active Substance: NINTEDANIB
     Indication: PULMONARY FIBROSIS
     Route: 048
     Dates: start: 201609, end: 20180226
  2. ESBRIET [Concomitant]
     Active Substance: PIRFENIDONE
     Indication: PULMONARY FIBROSIS
     Route: 048
     Dates: start: 201701

REACTIONS (3)
  - Anastomotic fistula [Recovered/Resolved with Sequelae]
  - Peritonitis [Recovered/Resolved]
  - Colonic fistula [Recovered/Resolved with Sequelae]

NARRATIVE: CASE EVENT DATE: 20180225
